FAERS Safety Report 5983153-3 (Version None)
Quarter: 2008Q4

REPORT INFORMATION
  Report Type: 
  Country: None (occurrence: None)
  Receive Date: 20081208
  Receipt Date: 20080606
  Transmission Date: 20090506
  Serious: No
  Sender: FDA-Public Use
  Company Number: US-BAYER-200810135BCC

PATIENT
  Age: 80 Year
  Sex: Female
  Weight: 58 kg

DRUGS (5)
  1. ALEVE-D SINUS + COLD [Suspect]
     Indication: NASOPHARYNGITIS
     Route: 048
     Dates: start: 20080107, end: 20080107
  2. CRESTOR [Concomitant]
  3. ATENOLOL [Concomitant]
  4. OSCAL [Concomitant]
  5. VITAMIN B-12 [Concomitant]

REACTIONS (5)
  - BACK PAIN [None]
  - FEELING JITTERY [None]
  - NASOPHARYNGITIS [None]
  - PAIN IN EXTREMITY [None]
  - PALPITATIONS [None]
